FAERS Safety Report 9853367 (Version 1)
Quarter: 2014Q1

REPORT INFORMATION
  Report Type: Spontaneous
  Country: DE (occurrence: DE)
  Receive Date: 20140129
  Receipt Date: 20140129
  Transmission Date: 20141002
  Serious: Yes (Hospitalization)
  Sender: FDA-Public Use
  Company Number: GXKR2014DE000652

PATIENT
  Sex: 0

DRUGS (10)
  1. VENLAFAXINE [Suspect]
     Indication: DEPRESSION
     Dosage: 37.5 MG, BID
     Route: 048
  2. HYDROCHLOROTHIAZIDE [Suspect]
     Indication: DIURETIC THERAPY
     Dosage: 12.5 MG, QD
     Route: 048
  3. SEROQUEL [Concomitant]
     Dosage: 300 MG, QD
     Route: 048
  4. SEROQUEL [Concomitant]
     Dosage: 200 MG, QD
     Route: 048
  5. VALDOXAN [Concomitant]
     Dosage: 25 MG, QD
     Route: 048
  6. OMEPRAZOLE [Concomitant]
     Dosage: 20 MG, QD
     Route: 048
  7. SPIRONOLACTON [Concomitant]
     Dosage: 25 MG, QD
     Route: 048
  8. LORZAAR [Concomitant]
     Dosage: 1-0-0-0-0
     Route: 048
  9. ZOP [Concomitant]
     Dosage: 0-0-0-1, PRN
     Route: 048
  10. SIMVASTATIN [Concomitant]
     Dosage: 10 MG, QD
     Route: 048

REACTIONS (2)
  - Inappropriate antidiuretic hormone secretion [Recovering/Resolving]
  - Hyponatraemia [Recovering/Resolving]
